FAERS Safety Report 6552422-0 (Version None)
Quarter: 2010Q1

REPORT INFORMATION
  Report Type: 
  Country: None (occurrence: None)
  Receive Date: 20100121
  Receipt Date: 20100111
  Transmission Date: 20100710
  Serious: Yes (Death)
  Sender: FDA-Public Use
  Company Number: 100118-0000055

PATIENT
  Age: 7 Month
  Sex: Female
  Weight: 6.65 kg

DRUGS (3)
  1. SABRIL [Suspect]
     Indication: INFANTILE SPASMS
     Dosage: 50 MG/KG; BID; PO 100 MG/KG;BID; PO
     Route: 048
     Dates: start: 20091015, end: 20091105
  2. SABRIL [Suspect]
     Indication: INFANTILE SPASMS
     Dosage: 50 MG/KG; BID; PO 100 MG/KG;BID; PO
     Route: 048
     Dates: start: 20091106
  3. KLONOPIN [Concomitant]

REACTIONS (4)
  - CARDIAC ARREST [None]
  - CLEFT LIP REPAIR [None]
  - RESPIRATORY ARREST [None]
  - UNRESPONSIVE TO STIMULI [None]
